FAERS Safety Report 5985307-9 (Version None)
Quarter: 2008Q4

REPORT INFORMATION
  Report Type: 
  Country: None (occurrence: None)
  Receive Date: 20081203
  Receipt Date: 20081119
  Transmission Date: 20090506
  Serious: Yes (Hospitalization, Other)
  Sender: FDA-Public Use
  Company Number: 2008098959

PATIENT
  Sex: Female

DRUGS (1)
  1. DALTEPARIN SODIUM [Suspect]
     Indication: HOMOCYSTINAEMIA
     Dosage: SUBCUTANEOUS
     Route: 058
     Dates: start: 20080101, end: 20080101

REACTIONS (4)
  - BLOOD FIBRINOGEN INCREASED [None]
  - DRUG EXPOSURE DURING PREGNANCY [None]
  - FIBRIN D DIMER INCREASED [None]
  - UTERINE HAEMATOMA [None]
